FAERS Safety Report 7306083-3 (Version None)
Quarter: 2011Q1

REPORT INFORMATION
  Report Type: 
  Country: None (occurrence: None)
  Receive Date: 20110210
  Receipt Date: 20110121
  Transmission Date: 20110831
  Serious: Yes (Hospitalization)
  Sender: FDA-Public Use
  Company Number: B0698589A

PATIENT
  Age: 63 Year
  Sex: Male

DRUGS (5)
  1. ARGATROBAN [Concomitant]
  2. ARIXTRA [Suspect]
     Dosage: SUBCUTANEOUS
     Route: 058
  3. HEPARIN (FORMULATION UKNOWN) (HEPARIN) [Suspect]
     Dosage: INTRAVENOUS
     Route: 042
  4. LEPIRUDIN [Concomitant]
  5. ENOXAPARIN [Concomitant]

REACTIONS (5)
  - DEEP VEIN THROMBOSIS [None]
  - TRANSAMINASES INCREASED [None]
  - DISEASE PROGRESSION [None]
  - HEPARIN-INDUCED THROMBOCYTOPENIA [None]
  - RESPIRATORY FAILURE [None]
